FAERS Safety Report 10065072 (Version 2)
Quarter: 2014Q2

REPORT INFORMATION
  Report Type: Spontaneous
  Country: US (occurrence: US)
  Receive Date: 20140408
  Receipt Date: 20140408
  Transmission Date: 20141212
  Serious: Yes (Death, Other)
  Sender: FDA-Public Use
  Company Number: US-TAKEDA-TPA2012A09206

PATIENT
  Sex: 0

DRUGS (1)
  1. ACTOS [Suspect]
     Indication: TYPE 2 DIABETES MELLITUS
     Dosage: ONE PER DAY
     Dates: start: 1998, end: 2005

REACTIONS (2)
  - Lung neoplasm malignant [Fatal]
  - Bladder cancer [Fatal]
